FAERS Safety Report 24912670 (Version 1)
Quarter: 2025Q1

REPORT INFORMATION
  Report Type: Spontaneous
  Country: FR (occurrence: FR)
  Receive Date: 20250131
  Receipt Date: 20250131
  Transmission Date: 20250409
  Serious: Yes (Death, Other)
  Sender: GILEAD
  Company Number: FR-GILEAD-2025-0702174

PATIENT

DRUGS (2)
  1. YESCARTA [Suspect]
     Active Substance: AXICABTAGENE CILOLEUCEL
     Indication: Diffuse large B-cell lymphoma
     Route: 065
  2. VIDAZA [Concomitant]
     Active Substance: AZACITIDINE

REACTIONS (2)
  - Death [Fatal]
  - Toxic epidermal necrolysis [Unknown]
